FAERS Safety Report 5818253-1 (Version None)
Quarter: 2008Q3

REPORT INFORMATION
  Report Type: 
  Country: None (occurrence: None)
  Receive Date: 20080722
  Receipt Date: 20080711
  Transmission Date: 20090109
  Serious: Yes (Hospitalization, Other)
  Sender: FDA-Public Use
  Company Number: BR-PFIZER INC-2008054023

PATIENT
  Sex: Male
  Weight: 82 kg

DRUGS (4)
  1. CITALOR [Suspect]
     Indication: BLOOD CHOLESTEROL INCREASED
     Route: 048
     Dates: start: 19990101, end: 20050501
  2. CITALOR [Suspect]
     Indication: ARTERIOSCLEROSIS
  3. AAS [Concomitant]
  4. SELOZOK [Concomitant]

REACTIONS (7)
  - ARTERIAL OCCLUSIVE DISEASE [None]
  - BLOOD CHOLESTEROL DECREASED [None]
  - BLOOD TESTOSTERONE ABNORMAL [None]
  - CHEST PAIN [None]
  - LIBIDO DECREASED [None]
  - OBESITY SURGERY [None]
  - PAIN IN EXTREMITY [None]
